APPROVED DRUG PRODUCT: VERELAN PM
Active Ingredient: VERAPAMIL HYDROCHLORIDE
Strength: 300MG
Dosage Form/Route: CAPSULE, EXTENDED RELEASE;ORAL
Application: N020943 | Product #003
Applicant: AZURITY PHARMACEUTICALS INC
Approved: Nov 25, 1998 | RLD: Yes | RS: Yes | Type: RX